FAERS Safety Report 14752932 (Version 1)
Quarter: 2018Q2

REPORT INFORMATION
  Report Type: Spontaneous
  Country: US (occurrence: US)
  Receive Date: 20180406
  Receipt Date: 20180406
  Transmission Date: 20180711
  Serious: Yes (Hospitalization)
  Sender: FDA-Public Use
  Company Number: None

PATIENT
  Age: 58 Year
  Sex: Female
  Weight: 101.25 kg

DRUGS (1)
  1. KEFLEX [Suspect]
     Active Substance: CEPHALEXIN
     Indication: HIP SURGERY
     Route: 042
     Dates: start: 20180402, end: 20180402

REACTIONS (7)
  - Internal haemorrhage [None]
  - Oropharyngeal pain [None]
  - Laryngospasm [None]
  - Tachycardia [None]
  - Diarrhoea haemorrhagic [None]
  - Abdominal discomfort [None]
  - Dehydration [None]

NARRATIVE: CASE EVENT DATE: 20180403
